FAERS Safety Report 5949604-5 (Version None)
Quarter: 2008Q4

REPORT INFORMATION
  Report Type: 
  Country: None (occurrence: None)
  Receive Date: 20081021
  Receipt Date: 20070914
  Transmission Date: 20090506
  Serious: Yes (Other)
  Sender: FDA-Public Use
  Company Number: HQWYE424626JUL04

PATIENT
  Age: 57 Year
  Sex: Female

DRUGS (5)
  1. PREMARIN [Suspect]
  2. ESTRADERM [Suspect]
  3. ESTRING [Suspect]
  4. MEDROXYPROGESTERONE [Suspect]
  5. PREMARIN [Suspect]

REACTIONS (1)
  - CEREBROVASCULAR ACCIDENT [None]
